FAERS Safety Report 13861974 (Version 1)
Quarter: 2017Q3

REPORT INFORMATION
  Report Type: Spontaneous
  Country: GB (occurrence: GB)
  Receive Date: 20170811
  Receipt Date: 20170811
  Transmission Date: 20171127
  Serious: Yes (Other)
  Sender: FDA-Public Use
  Company Number: GB-INTERNATIONAL MEDICATION SYSTEMS, LIMITED-2024537

PATIENT
  Age: 77 Year
  Sex: Female

DRUGS (1)
  1. ATROPINE. [Suspect]
     Active Substance: ATROPINE
     Dates: start: 20170716

REACTIONS (1)
  - Anaphylactic reaction [Recovered/Resolved]

NARRATIVE: CASE EVENT DATE: 20170716
